FAERS Safety Report 6994642-7 (Version None)
Quarter: 2010Q3

REPORT INFORMATION
  Report Type: 
  Country: None (occurrence: None)
  Receive Date: 20100915
  Receipt Date: 20100915
  Transmission Date: 20110219
  Serious: Yes (Life-Threatening)
  Sender: FDA-Public Use
  Company Number: None

PATIENT
  Age: 36 Year
  Sex: Male
  Weight: 895.4005 kg

DRUGS (1)
  1. CHANTIX [Suspect]
     Indication: SMOKING CESSATION THERAPY
     Dosage: 1 2 PO
     Route: 048
     Dates: start: 20100701, end: 20100909

REACTIONS (5)
  - AGGRESSION [None]
  - AGITATION [None]
  - CRYING [None]
  - DEPRESSION [None]
  - SUICIDAL IDEATION [None]
